FAERS Safety Report 20491117 (Version 1)
Quarter: 2022Q1

REPORT INFORMATION
  Report Type: Spontaneous
  Country: US (occurrence: None)
  Receive Date: 20220218
  Receipt Date: 20220218
  Transmission Date: 20220423
  Serious: No
  Sender: FDA-Public Use
  Company Number: None

PATIENT
  Sex: Female

DRUGS (1)
  1. PROCRIT [Suspect]
     Active Substance: ERYTHROPOIETIN
     Indication: End stage renal disease
     Dosage: OTHER QUANTITY : 40,000 UNITS ;?FREQUENCY : DAILY;?
     Route: 042
     Dates: start: 202101

REACTIONS (2)
  - Seizure [None]
  - Posterior reversible encephalopathy syndrome [None]
